FAERS Safety Report 25797938 (Version 1)
Quarter: 2025Q3

REPORT INFORMATION
  Report Type: Spontaneous
  Country: US (occurrence: None)
  Receive Date: 20250912
  Receipt Date: 20250912
  Transmission Date: 20251021
  Serious: Yes (Life-Threatening, Hospitalization)
  Sender: FDA-CTU
  Company Number: None

PATIENT
  Age: 62 Year
  Sex: Female

DRUGS (1)
  1. CARVYKTI [Suspect]
     Active Substance: CILTACABTAGENE AUTOLEUCEL
     Indication: Plasma cell myeloma
     Dates: start: 20250625, end: 20250625

REACTIONS (6)
  - Cytokine release syndrome [None]
  - Fall [None]
  - Tachycardia [None]
  - Pyrexia [None]
  - Rash macular [None]
  - Hypotension [None]

NARRATIVE: CASE EVENT DATE: 20250701
